FAERS Safety Report 4932722-8 (Version None)
Quarter: 2006Q1

REPORT INFORMATION
  Report Type: 
  Country: None (occurrence: None)
  Receive Date: 20060301
  Receipt Date: 20060301
  Transmission Date: 20060701
  Serious: Yes (Hospitalization)
  Sender: FDA-Public Use
  Company Number: None

PATIENT
  Age: 33 Year
  Sex: Female
  Weight: 75 kg

DRUGS (3)
  1. DURAMORPH PF [Suspect]
     Indication: POSTOPERATIVE ANALGESIA
     Dosage: 0.25MG  ONCE  INTRATRACHEAL
     Route: 039
  2. CLINDAMICYN [Concomitant]
  3. OXYTOCIN [Concomitant]

REACTIONS (3)
  - CAESAREAN SECTION [None]
  - ERYTHEMA [None]
  - PROCEDURAL COMPLICATION [None]
